FAERS Safety Report 7551896-6 (Version None)
Quarter: 2011Q2

REPORT INFORMATION
  Report Type: 
  Country: None (occurrence: None)
  Receive Date: 20110616
  Receipt Date: 20110606
  Transmission Date: 20111010
  Serious: Yes (Hospitalization, Other)
  Sender: FDA-Public Use
  Company Number: US-BAYER-201027135NA

PATIENT
  Age: 36 Year
  Sex: Female
  Weight: 61.224 kg

DRUGS (8)
  1. PREVPAC [Concomitant]
     Indication: PRODUCT USED FOR UNKNOWN INDICATION
  2. SKELAXIN [Concomitant]
     Indication: PRODUCT USED FOR UNKNOWN INDICATION
     Dosage: 800 MG, UNK
     Dates: start: 20090526
  3. LISINOPRIL [Concomitant]
     Indication: PRODUCT USED FOR UNKNOWN INDICATION
     Dosage: 5 MG, UNK
     Dates: start: 20090316
  4. HYDROCHLOROTHIAZIDE [Concomitant]
     Indication: PRODUCT USED FOR UNKNOWN INDICATION
     Dosage: 25 MG, UNK
     Dates: start: 20090316
  5. YASMIN [Suspect]
     Indication: PRODUCT USED FOR UNKNOWN INDICATION
     Route: 048
     Dates: start: 20020101
  6. OMEPRAZOLE [Concomitant]
     Indication: PRODUCT USED FOR UNKNOWN INDICATION
     Dosage: 40 MG, UNK
     Dates: start: 20090526
  7. YAZ [Suspect]
     Indication: PRODUCT USED FOR UNKNOWN INDICATION
     Dosage: UNK
     Route: 048
     Dates: start: 20071001, end: 20090601
  8. FLUCONAZOLE [Concomitant]
     Indication: PRODUCT USED FOR UNKNOWN INDICATION
     Dosage: 150 MG, UNK
     Dates: start: 20090609

REACTIONS (5)
  - CHOLECYSTITIS [None]
  - NAUSEA [None]
  - ABDOMINAL PAIN [None]
  - GASTROOESOPHAGEAL REFLUX DISEASE [None]
  - VOMITING [None]
